FAERS Safety Report 13886089 (Version 6)
Quarter: 2019Q4

REPORT INFORMATION
  Report Type: Spontaneous
  Country: US (occurrence: US)
  Receive Date: 20170821
  Receipt Date: 20191030
  Transmission Date: 20200122
  Serious: No
  Sender: FDA-Public Use
  Company Number: US-LEXICON PHARMACEUTICALS, INC-17-1606-00601

PATIENT
  Age: 66 Year
  Sex: Female

DRUGS (13)
  1. TELOTRISTAT ETHYL [Suspect]
     Active Substance: TELOTRISTAT ETHYL
     Indication: METASTASES TO LIVER
     Route: 048
     Dates: start: 2014
  2. COMBIGAN [Concomitant]
     Active Substance: BRIMONIDINE TARTRATE\TIMOLOL MALEATE
  3. TELOTRISTAT ETHYL [Suspect]
     Active Substance: TELOTRISTAT ETHYL
     Indication: CARCINOID TUMOUR
     Route: 048
     Dates: start: 20170712, end: 20170725
  4. LUTATHERA [Concomitant]
     Active Substance: LUTETIUM OXODOTREOTIDE LU-177
  5. SANDOSTATIN [Concomitant]
     Active Substance: OCTREOTIDE ACETATE
  6. LEVOTHYROXINE. [Concomitant]
     Active Substance: LEVOTHYROXINE
  7. AMLODIPINE [Concomitant]
     Active Substance: AMLODIPINE BESYLATE
  8. PROTONIX [Concomitant]
     Active Substance: PANTOPRAZOLE SODIUM
  9. VALSARTAN. [Concomitant]
     Active Substance: VALSARTAN
  10. CARVEDILOL. [Concomitant]
     Active Substance: CARVEDILOL
  11. LATANOPROST. [Concomitant]
     Active Substance: LATANOPROST
  12. FLONASE [Concomitant]
     Active Substance: FLUTICASONE PROPIONATE
  13. IMODIUM [Concomitant]
     Active Substance: LOPERAMIDE HYDROCHLORIDE
     Dates: end: 201707

REACTIONS (12)
  - Urticaria [Recovered/Resolved]
  - Dry mouth [Not Recovered/Not Resolved]
  - Frequent bowel movements [Unknown]
  - Flatulence [Not Recovered/Not Resolved]
  - Dry skin [Not Recovered/Not Resolved]
  - Therapeutic product effect variable [Unknown]
  - Hepatic enzyme increased [Recovered/Resolved]
  - Abdominal pain [Unknown]
  - Fatigue [Unknown]
  - Rash [Recovering/Resolving]
  - Night sweats [Unknown]
  - Dyspepsia [Unknown]

NARRATIVE: CASE EVENT DATE: 201707
